FAERS Safety Report 16025695 (Version 2)
Quarter: 2025Q3

REPORT INFORMATION
  Report Type: Spontaneous
  Country: EU (occurrence: EU)
  Receive Date: 20190302
  Receipt Date: 20250724
  Transmission Date: 20251021
  Serious: Yes (Hospitalization, Other)
  Sender: AUROBINDO
  Company Number: EU-AUROBINDO-AUR-APL-2019-009427

PATIENT
  Age: 80 Year
  Sex: Female

DRUGS (1)
  1. IBANDRONIC ACID [Suspect]
     Active Substance: IBANDRONIC ACID
     Indication: Osteoporosis
     Route: 048

REACTIONS (5)
  - Limb deformity [Unknown]
  - Motor dysfunction [Recovering/Resolving]
  - Osteoarthritis [Recovering/Resolving]
  - Pain in extremity [Recovering/Resolving]
  - Femur fracture [Recovering/Resolving]
